FAERS Safety Report 9375526 (Version 1)
Quarter: 2013Q2

REPORT INFORMATION
  Report Type: Spontaneous
  Country: FR (occurrence: FR)
  Receive Date: 20130628
  Receipt Date: 20130628
  Transmission Date: 20140414
  Serious: Yes (Hospitalization)
  Sender: FDA-Public Use
  Company Number: PHHY2013FR066588

PATIENT
  Age: 73 Year
  Sex: Male

DRUGS (8)
  1. EXFORGE [Suspect]
     Dosage: UNK
     Dates: start: 20091222, end: 20100505
  2. EXFORGE [Suspect]
     Dosage: UNK UKN, UNK
     Dates: start: 20100616
  3. HYTACAND [Suspect]
     Dosage: UNK
     Dates: end: 20091112
  4. APROVEL [Suspect]
     Dosage: UNK
     Dates: start: 20091112, end: 20091222
  5. FENOFIBRATE [Concomitant]
     Dosage: UNK
     Dates: start: 200810, end: 20091028
  6. PLAVIX [Concomitant]
     Dosage: UNK
  7. TANAKAN [Concomitant]
     Dosage: UNK
  8. CRESTOR [Concomitant]
     Dosage: UNK
     Dates: start: 20091028, end: 20091112

REACTIONS (5)
  - Dermatitis exfoliative [Recovered/Resolved]
  - Skin lesion [Unknown]
  - Pruritus [Unknown]
  - Eczema [Recovered/Resolved]
  - Rash [Unknown]
